FAERS Safety Report 15101719 (Version 11)
Quarter: 2023Q4

REPORT INFORMATION
  Report Type: Report from Study
  Country: DE (occurrence: DE)
  Receive Date: 20180703
  Receipt Date: 20231222
  Transmission Date: 20240109
  Serious: Yes (Death, Disabling, Congenital Anomaly, Other)
  Sender: FDA-Public Use
  Company Number: DE-AUROBINDO-AUR-APL-2018-033608

PATIENT
  Weight: 0.056 kg

DRUGS (37)
  1. ASPIRIN [Suspect]
     Active Substance: ASPIRIN
     Indication: Embolism venous
     Dosage: UNKFROM GESTATIONAL WEEK 0-14
     Route: 064
  2. ASPIRIN [Suspect]
     Active Substance: ASPIRIN
     Indication: Systemic lupus erythematosus
     Dosage: 100 MILLIGRAM, ONCE A DAY
     Route: 064
     Dates: start: 20111214, end: 20120320
  3. EZETIMIBE [Suspect]
     Active Substance: EZETIMIBE
     Indication: Product used for unknown indication
     Dosage: UNK
     Route: 064
  4. PANTOPRAZOLE [Suspect]
     Active Substance: PANTOPRAZOLE
     Indication: Product used for unknown indication
     Dosage: UNKFROM GESTATIONAL WEEK 0-14
     Route: 064
  5. PANTOPRAZOLE [Suspect]
     Active Substance: PANTOPRAZOLE
     Dosage: 40 MILLIGRAM, ONCE A DAY
     Route: 064
     Dates: start: 20111214, end: 20120320
  6. RAMIPRIL [Suspect]
     Active Substance: RAMIPRIL
     Indication: Hypertension
     Dosage: 20 MILLIGRAM ((FROM GESTATIONAL WEEK 0-113+6))
     Route: 064
  7. RIVAROXABAN [Suspect]
     Active Substance: RIVAROXABAN
     Indication: Product used for unknown indication
     Dosage: UNK
     Route: 064
  8. SIMVASTATIN [Suspect]
     Active Substance: SIMVASTATIN
     Indication: Product used for unknown indication
     Dosage: UNK FROM GESTATIONAL WEEK 0-14
     Route: 064
  9. TACROLIMUS [Suspect]
     Active Substance: TACROLIMUS
     Indication: Product used for unknown indication
     Dosage: UNK
     Route: 064
  10. TACROLIMUS [Suspect]
     Active Substance: TACROLIMUS
     Dosage: 6 MILLIGRAM, ONCE A DAY
     Route: 064
     Dates: start: 20111214, end: 20120320
  11. ALISKIREN [Suspect]
     Active Substance: ALISKIREN
     Indication: Product used for unknown indication
     Dosage: UNK
     Route: 064
  12. ENOXAPARIN SODIUM [Suspect]
     Active Substance: ENOXAPARIN SODIUM
     Indication: Product used for unknown indication
     Dosage: UNKNOWN  FROM GESTATIONAL WEEK 0-14
     Route: 064
  13. ENOXAPARIN SODIUM [Suspect]
     Active Substance: ENOXAPARIN SODIUM
     Dosage: 200 MILLIGRAM, ONCE A DAY
     Route: 064
     Dates: start: 20111214, end: 20120320
  14. DALTEPARIN SODIUM [Suspect]
     Active Substance: DALTEPARIN SODIUM
     Indication: Product used for unknown indication
     Dosage: UNK
     Route: 065
  15. DIPYRONE [Suspect]
     Active Substance: DIPYRONE
     Indication: Product used for unknown indication
     Dosage: UNK
     Route: 064
  16. RAMIPRIL [Suspect]
     Active Substance: RAMIPRIL
     Indication: Product used for unknown indication
     Dosage: 20 MG UNK FROM GESTATIONAL WEEK 0-113+6
     Route: 064
  17. RAMIPRIL [Suspect]
     Active Substance: RAMIPRIL
     Dosage: 20 MILLIGRAM, ONCE A DAY
     Route: 064
     Dates: start: 20111214, end: 20120320
  18. ENOXAPARIN SODIUM [Suspect]
     Active Substance: ENOXAPARIN SODIUM
     Indication: Product used for unknown indication
     Dosage: UNK (FROM GESTATIONAL WEEK 0-14)
     Route: 064
  19. HEPARIN [Suspect]
     Active Substance: HEPARIN SODIUM
     Indication: Product used for unknown indication
     Dosage: UNK
     Route: 064
  20. HYDROXYCHLOROQUINE [Suspect]
     Active Substance: HYDROXYCHLOROQUINE
     Indication: Product used for unknown indication
     Dosage: 400 MILLIGRAM, ONCE A DAY
     Route: 064
     Dates: start: 20111214, end: 20120320
  21. HYDROXYCHLOROQUINE [Suspect]
     Active Substance: HYDROXYCHLOROQUINE
     Dosage: UNK FROM GESTATIONAL WEEK 0-14
     Route: 064
  22. METAMIZOLE [Suspect]
     Active Substance: METAMIZOLE
     Indication: Product used for unknown indication
     Dosage: UNK (FROM GESTATIONAL WEEK 0-14)
     Route: 064
  23. NICOTINE [Suspect]
     Active Substance: NICOTINE
     Indication: Product used for unknown indication
     Dosage: UNK
     Route: 064
  24. METAMIZOLE [Suspect]
     Active Substance: METAMIZOLE
     Indication: Product used for unknown indication
     Dosage: UNKNOWN FROM GESTATIONAL WEEK 0-14 (; TRIMESTER: FIRST; PROBABLY ONLY IN HOSPITAL IN WEEK 5)
     Route: 064
  25. METAMIZOLE [Suspect]
     Active Substance: METAMIZOLE
     Dosage: 300 MILLIGRAM, ONCE A DAY
     Route: 064
     Dates: start: 20111214, end: 20120117
  26. PREDNISOLONE [Suspect]
     Active Substance: PREDNISOLONE
     Indication: Product used for unknown indication
     Dosage: UNK FROM GESTATIONAL WEEK 0-14
     Route: 064
  27. PREDNISOLONE [Suspect]
     Active Substance: PREDNISOLONE
     Dosage: 10 MILLIGRAM, TWO TIMES A DAY
     Route: 064
     Dates: start: 20111214, end: 20120320
  28. RITUXIMAB [Suspect]
     Active Substance: RITUXIMAB
     Indication: Product used for unknown indication
     Dosage: UNK
     Route: 064
  29. ALBUTEROL [Suspect]
     Active Substance: ALBUTEROL
     Indication: Product used for unknown indication
     Dosage: UNKFROM GESTATIONAL WEEK 0-14
     Route: 064
  30. TORSEMIDE [Suspect]
     Active Substance: TORSEMIDE
     Indication: Product used for unknown indication
     Dosage: UNK FROM GESTATIONAL WEEK 0-14
     Route: 064
  31. TORSEMIDE [Suspect]
     Active Substance: TORSEMIDE
     Dosage: 100 MILLIGRAM, ONCE A DAY
     Route: 064
     Dates: start: 20111214, end: 20120320
  32. TACROLIMUS [Suspect]
     Active Substance: TACROLIMUS
     Indication: Product used for unknown indication
     Dosage: UNK (FROM GESTATIONAL WEEK 0-14)
     Route: 064
  33. TORSEMIDE [Suspect]
     Active Substance: TORSEMIDE
     Indication: Product used for unknown indication
     Dosage: UNK (FROM GESTATIONAL WEEK 0-14)
     Route: 064
  34. XARELTO [Suspect]
     Active Substance: RIVAROXABAN
     Indication: Product used for unknown indication
     Dosage: UNK FROM GESTATIONAL WEEK 0-5
     Route: 064
  35. CYTOTEC [Suspect]
     Active Substance: MISOPROSTOL
     Indication: Product used for unknown indication
     Dosage: UNK
     Route: 064
     Dates: start: 20120320, end: 20120320
  36. MIFEPRISTONE [Concomitant]
     Active Substance: MIFEPRISTONE
     Indication: Product used for unknown indication
     Dosage: UNK
     Route: 064
     Dates: start: 20120320
  37. CYCLOPHOSPHAMIDE [Suspect]
     Active Substance: CYCLOPHOSPHAMIDE
     Indication: Systemic lupus erythematosus
     Dosage: 300 (MG CUMULATIVE) PRECONCEPTIONAL
     Route: 064

REACTIONS (12)
  - Ventricular septal defect [Fatal]
  - Foetal exposure during pregnancy [Fatal]
  - Truncus arteriosus persistent [Fatal]
  - Low birth weight baby [Fatal]
  - Premature baby [Fatal]
  - Death [Fatal]
  - Congenital cardiovascular anomaly [Fatal]
  - Cardiac septal defect [Fatal]
  - Heart disease congenital [Fatal]
  - Abortion induced [Fatal]
  - Product monitoring error [Unknown]
  - Contraindicated product administered [Unknown]
